FAERS Safety Report 9631116 (Version 1)
Quarter: 2013Q4

REPORT INFORMATION
  Report Type: Spontaneous
  Country: US (occurrence: US)
  Receive Date: 20131018
  Receipt Date: 20131018
  Transmission Date: 20140711
  Serious: Yes (Other)
  Sender: FDA-Public Use
  Company Number: US-MYLANLABS-2013S1022603

PATIENT
  Age: 46 Year
  Sex: Male

DRUGS (8)
  1. RISPERIDONE [Suspect]
     Route: 065
  2. ARIPIPRAZOLE [Suspect]
     Route: 065
  3. LORAZEPAM [Suspect]
     Route: 065
  4. BUPROPION [Concomitant]
     Route: 065
  5. LITHIUM [Concomitant]
     Route: 065
  6. DANTROLENE [Concomitant]
     Route: 065
  7. AMANTADINE [Concomitant]
     Route: 065
  8. BROMOCRIPTINE [Concomitant]
     Route: 065

REACTIONS (2)
  - Neuroleptic malignant syndrome [Recovered/Resolved]
  - Agitation [Recovering/Resolving]
